FAERS Safety Report 10731644 (Version 1)
Quarter: 2015Q1

REPORT INFORMATION
  Report Type: Spontaneous
  Country: AU (occurrence: AU)
  Receive Date: 20150123
  Receipt Date: 20150123
  Transmission Date: 20150721
  Serious: Yes (Other)
  Sender: FDA-Public Use
  Company Number: AU-RANBAXY-2015R3-91920

PATIENT
  Sex: Male

DRUGS (2)
  1. OZOLE [Suspect]
     Active Substance: FLUCONAZOLE
     Indication: ONYCHOMYCOSIS
     Dosage: 3 DF, 1/WEEK
     Route: 065
     Dates: start: 201403
  2. FISH OIL [Interacting]
     Active Substance: FISH OIL
     Indication: PRODUCT USED FOR UNKNOWN INDICATION
     Dosage: 8000 MG, DAILY
     Route: 065

REACTIONS (4)
  - Drug ineffective [Unknown]
  - Sleep apnoea syndrome [Unknown]
  - Food interaction [Unknown]
  - Insomnia [Unknown]
